FAERS Safety Report 9591596 (Version 1)
Quarter: 2013Q4

REPORT INFORMATION
  Report Type: Spontaneous
  Country: US (occurrence: US)
  Receive Date: 20131003
  Receipt Date: 20131003
  Transmission Date: 20140711
  Serious: No
  Sender: FDA-Public Use
  Company Number: US-AMGEN-USASP2012081907

PATIENT
  Sex: Female
  Weight: 81.63 kg

DRUGS (9)
  1. ENBREL [Suspect]
     Indication: RHEUMATOID ARTHRITIS
     Dosage: 50 MG, QWK
     Route: 058
  2. XYZAL [Concomitant]
     Dosage: 5 MG, UNK
  3. ASTELIN                            /00085801/ [Concomitant]
     Dosage: 137MCG,UNK
  4. PATADAY [Concomitant]
     Dosage: 0.2 %, UNK
  5. CLARINEX-D [Concomitant]
     Dosage: 2.5-120, UNK
  6. ZANTAC [Concomitant]
     Dosage: MAX ST,UNK
  7. CALCIUM [Concomitant]
     Dosage: UNK
  8. VIT D [Concomitant]
     Dosage: UNK
  9. ZEGERID                            /00661201/ [Concomitant]
     Dosage: 20-1100, UNK

REACTIONS (2)
  - Headache [Unknown]
  - Drug ineffective [Unknown]
